FAERS Safety Report 23579983 (Version 2)
Quarter: 2024Q1

REPORT INFORMATION
  Report Type: Spontaneous
  Country: US (occurrence: US)
  Receive Date: 20240229
  Receipt Date: 20240325
  Transmission Date: 20240409
  Serious: No
  Sender: FDA-Public Use
  Company Number: US-TAKEDA-2024TUS018607

PATIENT
  Sex: Male
  Weight: 69 kg

DRUGS (1)
  1. ADZYNMA [Suspect]
     Active Substance: ADAMTS13, RECOMBINANT-KRHN
     Indication: Thrombotic microangiopathy
     Dosage: 3000 INTERNATIONAL UNIT, 1/WEEK
     Route: 065

REACTIONS (2)
  - COVID-19 [Unknown]
  - Product administration error [Unknown]
